FAERS Safety Report 8255129-7 (Version None)
Quarter: 2012Q1

REPORT INFORMATION
  Report Type: 
  Country: None (occurrence: None)
  Receive Date: 20120330
  Receipt Date: 20120322
  Transmission Date: 20120608
  Serious: Yes (Other)
  Sender: FDA-Public Use
  Company Number: 2012SP015758

PATIENT
  Sex: Female

DRUGS (1)
  1. NASONEX [Suspect]
     Indication: PRODUCT USED FOR UNKNOWN INDICATION

REACTIONS (3)
  - INFLAMMATION [None]
  - HEADACHE [None]
  - NERVOUS SYSTEM DISORDER [None]
